FAERS Safety Report 21175863 (Version 1)
Quarter: 2022Q3

REPORT INFORMATION
  Report Type: Spontaneous
  Country: IL (occurrence: IL)
  Receive Date: 20220805
  Receipt Date: 20220805
  Transmission Date: 20221027
  Serious: Yes (Hospitalization, Other)
  Sender: FDA-Public Use
  Company Number: IL-Accord-271092

PATIENT
  Age: 23 Year
  Sex: Female
  Weight: 53 kg

DRUGS (11)
  1. TACROLIMUS [Interacting]
     Active Substance: TACROLIMUS
     Indication: Immunosuppression
     Dosage: HALVED TO 1 MG X 2/DAY
     Route: 048
     Dates: start: 20220110, end: 20220111
  2. NIRMATRELVIR\RITONAVIR [Interacting]
     Active Substance: NIRMATRELVIR\RITONAVIR
     Indication: COVID-19
     Dosage: 300 MG/100 MG
     Route: 048
     Dates: start: 20220112, end: 20220112
  3. PREDNISONE [Concomitant]
     Active Substance: PREDNISONE
     Indication: Immunosuppression
     Dosage: DOUBLED TO 10 MG/DAY
     Route: 048
     Dates: start: 202201
  4. MYCOPHENOLIC ACID [Concomitant]
     Active Substance: MYCOPHENOLIC ACID
     Indication: Immunosuppression
     Route: 048
     Dates: start: 202201
  5. VITAMIN D [Concomitant]
     Active Substance: VITAMIN D NOS
     Dosage: 1000 U/DAY
     Route: 048
  6. NIRMATRELVIR\RITONAVIR [Interacting]
     Active Substance: NIRMATRELVIR\RITONAVIR
     Indication: COVID-19
     Dosage: 300 MG/100 MG, 1 DOSAGE FORM
     Route: 048
     Dates: start: 20220111, end: 20220111
  7. TACROLIMUS [Interacting]
     Active Substance: TACROLIMUS
     Indication: Immunosuppression
     Route: 048
     Dates: start: 20220112, end: 20220114
  8. TACROLIMUS [Interacting]
     Active Substance: TACROLIMUS
     Indication: Immunosuppression
     Dosage: HALVED TO 1 MG X 2/DAY
     Route: 048
     Dates: start: 20220115, end: 20220117
  9. TACROLIMUS [Interacting]
     Active Substance: TACROLIMUS
     Indication: Immunosuppression
     Dosage: HALVED TO 1 MG X 2/DAY
     Route: 048
     Dates: start: 20220114, end: 20220115
  10. TACROLIMUS [Interacting]
     Active Substance: TACROLIMUS
     Indication: Immunosuppression
     Route: 048
     Dates: start: 20220111, end: 20220112
  11. TACROLIMUS [Interacting]
     Active Substance: TACROLIMUS
     Indication: Immunosuppression
     Dosage: 2 MG X 2/DAY
     Route: 048
     Dates: start: 20220110

REACTIONS (4)
  - Drug interaction [Unknown]
  - Drug level increased [Unknown]
  - Drug clearance decreased [Unknown]
  - Blood creatinine increased [Unknown]

NARRATIVE: CASE EVENT DATE: 20220112
